FAERS Safety Report 10454700 (Version 1)
Quarter: 2014Q3

REPORT INFORMATION
  Report Type: Spontaneous
  Country: US (occurrence: US)
  Receive Date: 20140915
  Receipt Date: 20140915
  Transmission Date: 20150326
  Serious: Yes (Other)
  Sender: FDA-Public Use
  Company Number: US-ROCHE-1460776

PATIENT
  Sex: Male

DRUGS (3)
  1. PERJETA [Suspect]
     Active Substance: PERTUZUMAB
     Indication: BREAST CANCER MALE
     Route: 065
  2. HERCEPTIN [Suspect]
     Active Substance: TRASTUZUMAB
     Indication: BREAST CANCER MALE
     Route: 065
  3. TAXOL [Suspect]
     Active Substance: PACLITAXEL
     Indication: BREAST CANCER MALE
     Route: 065

REACTIONS (4)
  - Haemolytic anaemia [Unknown]
  - Peripheral motor neuropathy [Unknown]
  - Aldolase increased [Unknown]
  - Asthenia [Unknown]
